FAERS Safety Report 7797394-6 (Version None)
Quarter: 2011Q4

REPORT INFORMATION
  Report Type: 
  Country: None (occurrence: None)
  Receive Date: 20111005
  Receipt Date: 20110929
  Transmission Date: 20120403
  Serious: Yes (Other)
  Sender: FDA-Public Use
  Company Number: JP-PFIZER INC-2011217555

PATIENT
  Age: 76 Year
  Sex: Female

DRUGS (1)
  1. SUTENT [Suspect]
     Indication: METASTATIC RENAL CELL CARCINOMA
     Dosage: 37.5 MG DAILY
     Route: 048
     Dates: start: 20100527, end: 20101022

REACTIONS (3)
  - THYROIDITIS [None]
  - HYPOTHYROIDISM [None]
  - HYPERTHYROIDISM [None]
